FAERS Safety Report 6800855-7 (Version None)
Quarter: 2010Q2

REPORT INFORMATION
  Report Type: 
  Country: None (occurrence: None)
  Receive Date: 20100629
  Receipt Date: 20100624
  Transmission Date: 20101027
  Serious: Yes (Hospitalization)
  Sender: FDA-Public Use
  Company Number: JP-BRISTOL-MYERS SQUIBB COMPANY-15165012

PATIENT
  Age: 60 Year
  Sex: Female
  Weight: 74 kg

DRUGS (16)
  1. CISPLATIN [Suspect]
     Indication: CERVIX CARCINOMA RECURRENT
     Dosage: 85MG(50MG/M2) CYCLE 2:65MG ON 07MAY2010
     Route: 042
     Dates: start: 20100407
  2. S-1 [Suspect]
     Indication: CERVIX CARCINOMA RECURRENT
     Route: 048
  3. OXYCONTIN [Concomitant]
     Indication: PAIN
     Route: 048
  4. OXINORM [Concomitant]
     Indication: PAIN
     Dosage: B.S
     Route: 048
  5. TEGRETOL [Concomitant]
     Indication: HYPOAESTHESIA
     Route: 048
  6. MAGMITT [Concomitant]
     Indication: CONSTIPATION
     Route: 048
  7. MUCOSTA [Concomitant]
     Indication: PROPHYLAXIS
     Route: 048
  8. THYRADIN S [Concomitant]
     Indication: HYPOTHYROIDISM
     Route: 048
  9. LIPITOR [Concomitant]
     Indication: HYPERCHOLESTEROLAEMIA
     Route: 048
     Dates: end: 20100519
  10. NIVADIL [Concomitant]
     Indication: HYPERTENSION
     Route: 048
     Dates: end: 20100419
  11. FELBINAC [Concomitant]
     Route: 062
  12. EBRANTIL [Concomitant]
     Indication: DYSURIA
     Route: 048
     Dates: start: 20100416, end: 20100421
  13. NAPROXEN [Concomitant]
     Route: 048
     Dates: start: 20100427
  14. AMOXAN [Concomitant]
     Indication: HYPOAESTHESIA
     Route: 048
     Dates: start: 20100518
  15. FORSENID [Concomitant]
     Indication: CONSTIPATION
     Route: 048
     Dates: start: 20100519
  16. ACETAMINOPHEN [Concomitant]
     Route: 048
     Dates: end: 20100427

REACTIONS (2)
  - PYELONEPHRITIS [None]
  - SEPSIS [None]
